FAERS Safety Report 5815433-6 (Version None)
Quarter: 2008Q3

REPORT INFORMATION
  Report Type: 
  Country: None (occurrence: None)
  Receive Date: 20080718
  Receipt Date: 20080707
  Transmission Date: 20090109
  Serious: Yes (Other)
  Sender: FDA-Public Use
  Company Number: ES-PFIZER INC-2008056852

PATIENT
  Age: 43 Year
  Sex: Male

DRUGS (4)
  1. VIAGRA [Suspect]
  2. EUGLUCON [Concomitant]
  3. METFORMIN HCL [Concomitant]
  4. FOSINOPRIL SODIUM [Concomitant]

REACTIONS (2)
  - ERYTHEMA [None]
  - SKIN ULCER [None]
